FAERS Safety Report 6032374-2 (Version None)
Quarter: 2008Q4

REPORT INFORMATION
  Report Type: 
  Country: None (occurrence: None)
  Receive Date: 20081224
  Receipt Date: 20080915
  Transmission Date: 20090506
  Serious: No
  Sender: FDA-Public Use
  Company Number: 2008PV036700

PATIENT
  Age: 33 Year
  Sex: Female
  Weight: 93.8946 kg

DRUGS (3)
  1. SYMLIN [Suspect]
     Indication: GLUCOSE TOLERANCE IMPAIRED
     Dosage: 120 MCG;TID;SC
     Route: 058
     Dates: start: 20080101, end: 20080101
  2. SYNTHROID [Concomitant]
  3. WELLBUTRIN [Concomitant]

REACTIONS (8)
  - ABDOMINAL PAIN UPPER [None]
  - BLOOD GLUCOSE DECREASED [None]
  - DIZZINESS [None]
  - FEELING ABNORMAL [None]
  - MALAISE [None]
  - NAUSEA [None]
  - SOMNOLENCE [None]
  - VOMITING [None]
